FAERS Safety Report 7482956-6 (Version None)
Quarter: 2011Q2

REPORT INFORMATION
  Report Type: 
  Country: None (occurrence: None)
  Receive Date: 20110516
  Receipt Date: 20110329
  Transmission Date: 20111010
  Serious: No
  Sender: FDA-Public Use
  Company Number: US-BAYER-2011-028786

PATIENT
  Age: 60 Year
  Sex: Female
  Weight: 89.796 kg

DRUGS (1)
  1. ALEVE (CAPLET) [Suspect]
     Indication: ARTHRITIS
     Dosage: 440 MG, BID
     Dates: start: 19980101

REACTIONS (1)
  - NO ADVERSE EVENT [None]
